FAERS Safety Report 8329550-2 (Version None)
Quarter: 2012Q2

REPORT INFORMATION
  Report Type: 
  Country: None (occurrence: None)
  Receive Date: 20120502
  Receipt Date: 20120423
  Transmission Date: 20120825
  Serious: No
  Sender: FDA-Public Use
  Company Number: US-PFIZER INC-2012100565

PATIENT
  Sex: Female

DRUGS (6)
  1. LYRICA [Suspect]
     Indication: NEUROPATHY PERIPHERAL
     Dosage: 150 MG, 2X/DAY
     Route: 048
  2. LYRICA [Suspect]
  3. LYRICA [Suspect]
     Indication: FIBROMYALGIA
  4. LYRICA [Suspect]
  5. LYRICA [Suspect]
     Indication: POST HERPETIC NEURALGIA
  6. IMITREX [Concomitant]
     Indication: MIGRAINE
     Dosage: 100 MG, AS NEEDED
     Route: 048

REACTIONS (5)
  - SWELLING FACE [None]
  - ROSACEA [None]
  - WEIGHT FLUCTUATION [None]
  - LIP SWELLING [None]
  - WEIGHT INCREASED [None]
